FAERS Safety Report 5432116-5 (Version None)
Quarter: 2007Q3

REPORT INFORMATION
  Report Type: 
  Country: None (occurrence: None)
  Receive Date: 20070830
  Receipt Date: 20070821
  Transmission Date: 20080115
  Serious: Yes (Hospitalization)
  Sender: FDA-Public Use
  Company Number: JP-ABBOTT-07P-087-0378722-00

PATIENT
  Age: 86 Year
  Sex: Female
  Weight: 56 kg

DRUGS (12)
  1. CLARITHROMYCIN [Interacting]
     Indication: HELICOBACTER INFECTION
     Route: 048
     Dates: start: 20070607, end: 20070609
  2. GLYBURIDE [Interacting]
     Indication: DIABETES MELLITUS
     Route: 048
     Dates: start: 20031217, end: 20070609
  3. PIOGLITAZONE HCL [Suspect]
     Indication: DIABETES MELLITUS
     Route: 048
     Dates: start: 20031217, end: 20070609
  4. SIMVASTATIN [Concomitant]
     Indication: HYPERLIPIDAEMIA
     Route: 048
     Dates: start: 20040119
  5. TELMISARTAN [Concomitant]
     Indication: HYPERTENSION
     Route: 048
     Dates: start: 20060414
  6. RABEPRAZOLE SODIUM [Concomitant]
     Indication: HELICOBACTER INFECTION
     Route: 048
     Dates: start: 20070607, end: 20070609
  7. AMOXICILLIN HYDRATE [Concomitant]
     Indication: HELICOBACTER INFECTION
     Dates: start: 20070607, end: 20070609
  8. MELOXICAM [Concomitant]
     Indication: BACK PAIN
     Route: 048
     Dates: start: 20040819
  9. FERROUS SODIUM CITRATE [Concomitant]
     Indication: IRON DEFICIENCY ANAEMIA
     Route: 048
     Dates: start: 20060817
  10. AZULENE SULFONATE SODIUM/L-GLUTAMINE [Concomitant]
     Indication: GASTRIC ULCER
     Route: 048
     Dates: start: 20031217
  11. SPORE FORMING LACTIC ACID BACTERIA [Concomitant]
     Indication: GASTRIC ULCER
     Route: 048
     Dates: start: 20031217
  12. MAGNESIUM OXIDE [Concomitant]
     Indication: CONSTIPATION
     Route: 048
     Dates: start: 20031217

REACTIONS (4)
  - DIZZINESS [None]
  - DRUG INTERACTION [None]
  - HYPOGLYCAEMIC COMA [None]
  - SYNCOPE [None]
